FAERS Safety Report 13614196 (Version 1)
Quarter: 2017Q2

REPORT INFORMATION
  Report Type: Spontaneous
  Country: US (occurrence: US)
  Receive Date: 20170606
  Receipt Date: 20170606
  Transmission Date: 20170830
  Serious: No
  Sender: FDA-Public Use
  Company Number: US-TAKEDA-2017MPI004964

PATIENT
  Sex: Male
  Weight: 68.27 kg

DRUGS (2)
  1. GAMMAGARD [Concomitant]
     Active Substance: HUMAN IMMUNOGLOBULIN G
     Dosage: UNK
     Route: 065
  2. VELCADE [Suspect]
     Active Substance: BORTEZOMIB
     Indication: NON-HODGKIN^S LYMPHOMA
     Dosage: UNK
     Route: 058
     Dates: start: 20170316

REACTIONS (2)
  - Off label use [Unknown]
  - No adverse event [Unknown]
